FAERS Safety Report 7020057-1 (Version None)
Quarter: 2010Q3

REPORT INFORMATION
  Report Type: 
  Country: None (occurrence: None)
  Receive Date: 20100929
  Receipt Date: 20100920
  Transmission Date: 20110219
  Serious: No
  Sender: FDA-Public Use
  Company Number: US-ROXANE LABORATORIES, INC.-2010-RO-01278RO

PATIENT
  Sex: Male

DRUGS (1)
  1. IMIPRAMINE PAMOATE [Suspect]
     Indication: HYPERTONIC BLADDER
     Dosage: 75 MG
     Route: 048
     Dates: start: 20100917, end: 20100919

REACTIONS (3)
  - FEELING JITTERY [None]
  - HYPERHIDROSIS [None]
  - SOMNOLENCE [None]
